FAERS Safety Report 15669581 (Version 2)
Quarter: 2019Q3

REPORT INFORMATION
  Report Type: Spontaneous
  Country: IT (occurrence: IT)
  Receive Date: 20181129
  Receipt Date: 20190802
  Transmission Date: 20191004
  Serious: Yes (Life-Threatening, Hospitalization, Other)
  Sender: FDA-Public Use
  Company Number: IT-MACLEODS PHARMACEUTICALS US LTD-MAC2018018767

PATIENT

DRUGS (7)
  1. ARIPIPRAZOLE. [Suspect]
     Active Substance: ARIPIPRAZOLE
     Indication: SCHIZOAFFECTIVE DISORDER
     Dosage: 400 MILLIGRAM INJECTION FOR 1 MONTH (LONG ACTING) IN SEP 2016, THE SUSPECT DRUG WAS DISCONTINUED
     Route: 065
  2. ARIPIPRAZOLE. [Suspect]
     Active Substance: ARIPIPRAZOLE
     Dosage: ON AN UNKNOWN DATE IN SEP 2016 THE PATIENT STARTED 400 MILLIGRAM INJECTION FOR 1 MONTH (LONG ACTING)
     Route: 065
  3. CLOZAPINE. [Suspect]
     Active Substance: CLOZAPINE
     Dosage: ON AN UNKNOLWN DATE IN 2016, THE PATIENT WAS STARTED 100 MILLIGRAM, QD
     Route: 065
  4. LORAZEPAM. [Concomitant]
     Active Substance: LORAZEPAM
     Indication: SCHIZOAFFECTIVE DISORDER
     Dosage: 1 MILLIGRAM, QD
     Route: 065
  5. INDOMETHACIN. [Concomitant]
     Active Substance: INDOMETHACIN
     Indication: SCHIZOAFFECTIVE DISORDER
     Dosage: 50 MILLIGRAM, BID
     Route: 048
  6. CLOZAPINE. [Suspect]
     Active Substance: CLOZAPINE
     Indication: SCHIZOAFFECTIVE DISORDER
     Dosage: 100 MILLIGRAM, BID (LOW DOSE) ON AN UNKNOLWN DATE IN 2016 THE SUSPECT DRUG WAS DISCONTINUED
     Route: 065
     Dates: start: 2016
  7. VALPROIC ACID. [Concomitant]
     Active Substance: VALPROIC ACID
     Indication: SCHIZOAFFECTIVE DISORDER
     Dosage: 500 MILLIGRAM, BID
     Route: 065

REACTIONS (2)
  - Pericarditis [Recovered/Resolved]
  - Pericardial effusion [Recovered/Resolved]
